FAERS Safety Report 19794981 (Version 1)
Quarter: 2021Q3

REPORT INFORMATION
  Report Type: Spontaneous
  Country: FR (occurrence: FR)
  Receive Date: 20210907
  Receipt Date: 20210907
  Transmission Date: 20211014
  Serious: Yes (Other)
  Sender: FDA-Public Use
  Company Number: FR-AUROBINDO-AUR-APL-2021-037665

PATIENT
  Age: 91 Year
  Sex: Male

DRUGS (4)
  1. IXPRIM [Suspect]
     Active Substance: ACETAMINOPHEN\TRAMADOL HYDROCHLORIDE
     Indication: OSTEOARTHRITIS
     Dosage: 4 DOSAGE FORM, ONCE A DAY
     Route: 048
  2. AMLOR [Concomitant]
     Active Substance: AMLODIPINE BESYLATE
     Indication: HYPERTENSION
     Dosage: UNK
     Route: 065
  3. TRAMADOL. [Suspect]
     Active Substance: TRAMADOL
     Indication: ARTHRALGIA
     Dosage: 200 MILLIGRAM, ONCE A DAY
     Route: 048
     Dates: start: 20210725
  4. PERINDOPRIL [Concomitant]
     Active Substance: PERINDOPRIL
     Indication: HYPERTENSION
     Dosage: UNK
     Route: 065

REACTIONS (5)
  - Hallucination [Not Recovered/Not Resolved]
  - Paraesthesia [Not Recovered/Not Resolved]
  - Bundle branch block [Not Recovered/Not Resolved]
  - Overdose [Not Recovered/Not Resolved]
  - Confusional state [Not Recovered/Not Resolved]

NARRATIVE: CASE EVENT DATE: 20210728
